FAERS Safety Report 12293256 (Version 1)
Quarter: 2016Q2

REPORT INFORMATION
  Report Type: Spontaneous
  Country: US (occurrence: US)
  Receive Date: 20160421
  Receipt Date: 20160421
  Transmission Date: 20160815
  Serious: Yes (Other)
  Sender: FDA-Public Use
  Company Number: US-ALEXION PHARMACEUTICALS INC-A201602725

PATIENT
  Sex: Female

DRUGS (1)
  1. STRENSIQ [Suspect]
     Active Substance: ASFOTASE ALFA
     Dosage: 3 TIMES, QW
     Route: 058
     Dates: start: 20160220

REACTIONS (3)
  - Condition aggravated [Unknown]
  - Injection site reaction [Unknown]
  - Anxiety [Not Recovered/Not Resolved]
